FAERS Safety Report 10014668 (Version 2)
Quarter: 2014Q2

REPORT INFORMATION
  Report Type: Spontaneous
  Country: US (occurrence: US)
  Receive Date: 20140317
  Receipt Date: 20140410
  Transmission Date: 20141212
  Serious: Yes (Death, Hospitalization)
  Sender: FDA-Public Use
  Company Number: US-PFIZER INC-2014076570

PATIENT
  Age: 85 Year
  Sex: Female
  Weight: 72.56 kg

DRUGS (2)
  1. EFFEXOR XR [Suspect]
     Indication: DEPRESSION
     Dosage: CHANGING BETWEEN 75 MG AND 150 MG, UNKNOWN FREQUENCY
  2. BABY ASPIRIN [Concomitant]
     Dosage: 81 MG, DAILY

REACTIONS (1)
  - Heart rate increased [Fatal]
